FAERS Safety Report 8156351 (Version 4)
Quarter: 2013Q1

REPORT INFORMATION
  Report Type: Spontaneous
  Country: US (occurrence: US)
  Receive Date: 20110926
  Receipt Date: 20130306
  Transmission Date: 20140127
  Serious: Yes (Hospitalization, Other)
  Sender: FDA-Public Use
  Company Number: PHHY2011US39710

PATIENT
  Sex: Male

DRUGS (2)
  1. TASIGNA [Suspect]
     Indication: CHRONIC MYELOID LEUKAEMIA
     Dosage: 300 MG (150 MG - 2 CAPUSLES TWICE DAILY)
     Dates: start: 20110420
  2. TASIGNA [Suspect]
     Dosage: 300 MG, BID
     Route: 048

REACTIONS (17)
  - Polyuria [Unknown]
  - Arthralgia [Not Recovered/Not Resolved]
  - Night sweats [Unknown]
  - Fatigue [Unknown]
  - Nocturia [Unknown]
  - Musculoskeletal pain [Unknown]
  - Vision blurred [Unknown]
  - Myalgia [Not Recovered/Not Resolved]
  - Leukaemia recurrent [Unknown]
  - Incorrect drug administration duration [Unknown]
  - Depressed level of consciousness [Unknown]
  - Somnolence [Unknown]
  - Dehydration [Unknown]
  - Abdominal pain upper [Not Recovered/Not Resolved]
  - Insomnia [Not Recovered/Not Resolved]
  - Weight decreased [Not Recovered/Not Resolved]
  - Alopecia [Unknown]
